FAERS Safety Report 20140346 (Version 1)
Quarter: 2021Q4

REPORT INFORMATION
  Report Type: Spontaneous
  Country: US (occurrence: None)
  Receive Date: 20211201
  Receipt Date: 20211201
  Transmission Date: 20220303
  Serious: No
  Sender: FDA-Public Use
  Company Number: None

PATIENT

DRUGS (1)
  1. REGEN-COV [Suspect]
     Active Substance: CASIRIVIMAB\IMDEVIMAB
     Route: 042

REACTIONS (6)
  - Product use complaint [None]
  - Product preparation error [None]
  - Product dispensing error [None]
  - Incorrect dose administered [None]
  - Packaging design issue [None]
  - Product preparation error [None]
